FAERS Safety Report 25099446 (Version 1)
Quarter: 2025Q1

REPORT INFORMATION
  Report Type: Spontaneous
  Country: FR (occurrence: FR)
  Receive Date: 20250320
  Receipt Date: 20250320
  Transmission Date: 20250409
  Serious: Yes (Other)
  Sender: NOVARTIS
  Company Number: None

PATIENT
  Age: 80 Year
  Sex: Female
  Weight: 45 kg

DRUGS (16)
  1. TOBREX [Suspect]
     Active Substance: TOBRAMYCIN
     Indication: Antibiotic prophylaxis
     Dosage: 6 DOSAGE FORM, QD
     Route: 031
     Dates: start: 20250220, end: 20250226
  2. CILASTATIN SODIUM\IMIPENEM [Suspect]
     Active Substance: CILASTATIN SODIUM\IMIPENEM
     Indication: Antibiotic prophylaxis
     Dosage: 250 ML, QD
     Route: 042
     Dates: start: 20250217, end: 20250225
  3. LEVOFLOXACIN [Suspect]
     Active Substance: LEVOFLOXACIN
     Indication: Antibiotic prophylaxis
     Dosage: 500 MG, BID (1000 MG, QD) (500MG 2/J)
     Route: 042
     Dates: start: 20250217, end: 20250226
  4. TROPICAMIDE [Suspect]
     Active Substance: TROPICAMIDE
     Indication: Mydriasis
     Dosage: 3 DOSAGE FORM, QD
     Route: 031
     Dates: start: 20250220
  5. ATROPINE SULFATE [Suspect]
     Active Substance: ATROPINE SULFATE
     Indication: Uveitis
     Dosage: 2 DOSAGE FORM, QD (1GOUTTE 2/J)
     Route: 031
     Dates: start: 20250220
  6. VITAMIN A PALMITATE [Suspect]
     Active Substance: VITAMIN A PALMITATE
     Indication: Promotion of wound healing
     Dosage: 3 DOSAGE FORM, QD
     Route: 031
     Dates: start: 20250219
  7. ALBUTEROL [Concomitant]
     Active Substance: ALBUTEROL
     Indication: Product used for unknown indication
     Route: 065
  8. RAMIPRIL [Concomitant]
     Active Substance: RAMIPRIL
     Indication: Product used for unknown indication
     Route: 065
  9. LEVOTHYROXINE [Concomitant]
     Active Substance: LEVOTHYROXINE
     Indication: Product used for unknown indication
     Route: 065
  10. LANSOPRAZOLE [Concomitant]
     Active Substance: LANSOPRAZOLE
     Indication: Product used for unknown indication
     Route: 065
  11. FLUTICASONE PROPIONATE [Concomitant]
     Active Substance: FLUTICASONE PROPIONATE
     Indication: Product used for unknown indication
     Route: 065
  12. DILTIAZEM HYDROCHLORIDE [Concomitant]
     Active Substance: DILTIAZEM HYDROCHLORIDE
     Indication: Product used for unknown indication
     Route: 065
  13. BISOPROLOL FUMARATE [Concomitant]
     Active Substance: BISOPROLOL FUMARATE
     Indication: Product used for unknown indication
     Route: 065
  14. BAMBUTEROL HYDROCHLORIDE [Concomitant]
     Active Substance: BAMBUTEROL HYDROCHLORIDE
     Indication: Product used for unknown indication
     Route: 065
  15. ATORVASTATIN [Concomitant]
     Active Substance: ATORVASTATIN
     Indication: Product used for unknown indication
     Route: 065
  16. ELIQUIS [Concomitant]
     Active Substance: APIXABAN
     Indication: Product used for unknown indication
     Route: 065

REACTIONS (1)
  - Rash maculo-papular [Not Recovered/Not Resolved]

NARRATIVE: CASE EVENT DATE: 20250225
